FAERS Safety Report 5150358-3 (Version None)
Quarter: 2006Q4

REPORT INFORMATION
  Report Type: 
  Country: None (occurrence: None)
  Receive Date: 20061108
  Receipt Date: 20061030
  Transmission Date: 20070319
  Serious: Yes (Other)
  Sender: FDA-Public Use
  Company Number: 2006133064

PATIENT
  Sex: Female

DRUGS (1)
  1. LIPITOR [Suspect]
     Dosage: (10 MG), ORAL
     Route: 048
     Dates: start: 20000401, end: 20031101

REACTIONS (2)
  - MYOSITIS [None]
  - NECROSIS [None]
